FAERS Safety Report 24015262 (Version 2)
Quarter: 2024Q3

REPORT INFORMATION
  Report Type: Spontaneous
  Country: US (occurrence: US)
  Receive Date: 20240626
  Receipt Date: 20240807
  Transmission Date: 20241016
  Serious: No
  Sender: MYLAN
  Company Number: US-MYLANLABS-2024M1055672

PATIENT
  Age: 75 Year
  Sex: Male
  Weight: 114.31 kg

DRUGS (1)
  1. WIXELA INHUB [Suspect]
     Active Substance: FLUTICASONE PROPIONATE\SALMETEROL XINAFOATE
     Indication: Asthma
     Dosage: 250/50 MICROGRAM, QD (1 INHALATION PER DAY)
     Route: 065

REACTIONS (4)
  - Circumstance or information capable of leading to medication error [Unknown]
  - Off label use [Unknown]
  - Device failure [Unknown]
  - Product quality issue [Unknown]

NARRATIVE: CASE EVENT DATE: 20240529
